FAERS Safety Report 5508712-3 (Version None)
Quarter: 2007Q4

REPORT INFORMATION
  Report Type: 
  Country: None (occurrence: None)
  Receive Date: 20071107
  Receipt Date: 20071031
  Transmission Date: 20080405
  Serious: Yes (Hospitalization)
  Sender: FDA-Public Use
  Company Number: BR-ASTRAZENECA-2007UW25396

PATIENT
  Age: 91 Year
  Sex: Female

DRUGS (8)
  1. ARIMIDEX [Suspect]
     Route: 048
     Dates: start: 20070401
  2. MAREVAN [Concomitant]
     Indication: ANTICOAGULANT THERAPY
  3. EUTHYROX [Concomitant]
  4. PROLOPA [Concomitant]
     Indication: PARKINSON'S DISEASE
  5. HIDANTAL [Concomitant]
     Indication: CONVULSION
  6. MALEATO DE ENALAPRIL [Concomitant]
     Indication: HYPERTENSION
  7. RANITIDINE [Concomitant]
     Dates: end: 20070901
  8. OMEPRAZOLE [Concomitant]
     Dates: start: 20071001

REACTIONS (5)
  - DUODENAL ULCER [None]
  - PLEURAL EFFUSION [None]
  - PNEUMONIA [None]
  - PULMONARY HAEMORRHAGE [None]
  - SECRETION DISCHARGE [None]
